FAERS Safety Report 21647482 (Version 1)
Quarter: 2022Q4

REPORT INFORMATION
  Report Type: Report from Study
  Country: JP (occurrence: None)
  Receive Date: 20221128
  Receipt Date: 20221128
  Transmission Date: 20230112
  Serious: Yes (Other)
  Sender: FDA-Public Use
  Company Number: JP-Merck Healthcare KGaA-9367235

PATIENT
  Sex: Female

DRUGS (1)
  1. GONAL-F RFF [Suspect]
     Active Substance: FOLLITROPIN
     Indication: Product used for unknown indication
     Dosage: GONAL F PEN 900 (GF) AT 225 UNITS/DAY
     Route: 058

REACTIONS (3)
  - Loss of consciousness [Unknown]
  - Dizziness [Unknown]
  - Circumstance or information capable of leading to medication error [Unknown]

NARRATIVE: CASE EVENT DATE: 20221117
